FAERS Safety Report 8314227-X (Version None)
Quarter: 2012Q2

REPORT INFORMATION
  Report Type: 
  Country: None (occurrence: None)
  Receive Date: 20120424
  Receipt Date: 20120418
  Transmission Date: 20120825
  Serious: Yes (Death, Hospitalization)
  Sender: FDA-Public Use
  Company Number: WAES 1202USA01115

PATIENT
  Age: 56 Year
  Sex: Male

DRUGS (3)
  1. GEMCITABINE [Suspect]
  2. CAP VORINOSTAT [Suspect]
     Indication: MYCOSIS FUNGOIDES
     Dosage: 400 MG/DAILY, PO; 300 MG/DAILY, PO
     Route: 048
     Dates: start: 20110614, end: 20110701
  3. CAP VORINOSTAT [Suspect]
     Indication: MYCOSIS FUNGOIDES
     Dosage: 400 MG/DAILY, PO; 300 MG/DAILY, PO
     Route: 048
     Dates: start: 20110701

REACTIONS (8)
  - DISEASE PROGRESSION [None]
  - LYMPHOMA [None]
  - DECREASED APPETITE [None]
  - CARDIAC FAILURE [None]
  - INFECTION [None]
  - THROMBOCYTOPENIA [None]
  - NEOPLASM MALIGNANT [None]
  - NAUSEA [None]
